FAERS Safety Report 13628716 (Version 1)
Quarter: 2017Q2

REPORT INFORMATION
  Report Type: Spontaneous
  Country: US (occurrence: US)
  Receive Date: 20170531
  Receipt Date: 20170531
  Transmission Date: 20170830
  Serious: No
  Sender: FDA-Public Use
  Company Number: US-ASTELLAS-1041175

PATIENT
  Sex: Female
  Weight: 61.29 kg

DRUGS (1)
  1. TARCEVA [Suspect]
     Active Substance: ERLOTINIB HYDROCHLORIDE
     Indication: PRODUCT USED FOR UNKNOWN INDICATION

REACTIONS (14)
  - Eye swelling [Unknown]
  - Eye pain [Unknown]
  - Pain [Unknown]
  - Ocular hyperaemia [Unknown]
  - Peripheral swelling [Unknown]
  - Skin exfoliation [Unknown]
  - Dyspnoea [Unknown]
  - Chest discomfort [Unknown]
  - Throat tightness [Unknown]
  - Dry eye [Unknown]
  - Skin fissures [Unknown]
  - Eye irritation [Unknown]
  - Pruritus [Unknown]
  - Rash [Unknown]
